FAERS Safety Report 8880991 (Version 3)
Quarter: 2012Q4

REPORT INFORMATION
  Report Type: 
  Country: FR (occurrence: FR)
  Receive Date: 20121101
  Receipt Date: 20121119
  Transmission Date: 20130627
  Serious: Yes (Life-Threatening, Other)
  Sender: FDA-Public Use
  Company Number: FR-PFIZER INC-2012272271

PATIENT
  Age: 82 Year
  Sex: Female
  Weight: 60 kg

DRUGS (3)
  1. PANTOPRAZOLE [Suspect]
     Dosage: 40 mg, daily
     Route: 042
     Dates: start: 20120706, end: 20120710
  2. AMIKACIN [Suspect]
     Indication: SEPTIC SHOCK
     Dosage: 1800 mg, UNK
     Route: 042
     Dates: start: 20120710, end: 20120710
  3. MERONEM [Concomitant]
     Indication: SEPTIC SHOCK
     Dosage: 6 gm, UNK
     Route: 042
     Dates: start: 20120710, end: 20120711

REACTIONS (2)
  - Renal failure acute [Unknown]
  - Septic shock [Not Recovered/Not Resolved]
